FAERS Safety Report 15591654 (Version 1)
Quarter: 2018Q4

REPORT INFORMATION
  Report Type: Spontaneous
  Country: US (occurrence: US)
  Receive Date: 20181106
  Receipt Date: 20181106
  Transmission Date: 20190205
  Serious: Yes (Other)
  Sender: FDA-Public Use
  Company Number: None

PATIENT
  Age: 54 Year
  Sex: Female
  Weight: 75.15 kg

DRUGS (5)
  1. ATORVASTATIN [Concomitant]
     Active Substance: ATORVASTATIN
  2. HYOSCYAMINE. [Concomitant]
     Active Substance: HYOSCYAMINE
  3. SOLIQUA INSULIN [Concomitant]
  4. INVOKANA [Suspect]
     Active Substance: CANAGLIFLOZIN
     Indication: TYPE 2 DIABETES MELLITUS
     Dosage: ?          QUANTITY:1 TABLET(S);?
     Route: 048
     Dates: start: 20180804, end: 20181031
  5. IBUPROFEN. [Concomitant]
     Active Substance: IBUPROFEN

REACTIONS (6)
  - Hypoaesthesia [None]
  - Feeling cold [None]
  - Gastrointestinal disorder [None]
  - Paraesthesia [None]
  - Blood glucose increased [None]
  - Product complaint [None]

NARRATIVE: CASE EVENT DATE: 20181020
